FAERS Safety Report 6640712-2 (Version None)
Quarter: 2010Q1

REPORT INFORMATION
  Report Type: 
  Country: None (occurrence: None)
  Receive Date: 20100318
  Receipt Date: 20100305
  Transmission Date: 20100710
  Serious: Yes (Hospitalization, Other)
  Sender: FDA-Public Use
  Company Number: US-ELI_LILLY_AND_COMPANY-US200910004058

PATIENT
  Sex: Male
  Weight: 111.11 kg

DRUGS (14)
  1. BYETTA [Suspect]
     Dosage: 5 UG, 2/D
     Route: 058
     Dates: start: 20060201, end: 20080816
  2. GLIPIZIDE [Concomitant]
  3. LIPITOR [Concomitant]
  4. TRICOR [Concomitant]
  5. AVANDIA [Concomitant]
  6. AVALIDE [Concomitant]
  7. AVAPRO [Concomitant]
  8. LEVITRA [Concomitant]
  9. CHLORHEXIDINE GLUCONATE [Concomitant]
  10. METHADONE HCL [Concomitant]
  11. REGLAN [Concomitant]
  12. ACTOS [Concomitant]
  13. SIMVASTATIN [Concomitant]
  14. METFORMIN HYDROCHLORIDE [Concomitant]

REACTIONS (4)
  - OFF LABEL USE [None]
  - PANCREATITIS ACUTE [None]
  - PANCREATITIS CHRONIC [None]
  - RENAL FAILURE CHRONIC [None]
